FAERS Safety Report 6631964-3 (Version None)
Quarter: 2010Q1

REPORT INFORMATION
  Report Type: 
  Country: None (occurrence: None)
  Receive Date: 20100312
  Receipt Date: 20090605
  Transmission Date: 20100710
  Serious: No
  Sender: FDA-Public Use
  Company Number: US-BIOGENIDEC-2009BI017303

PATIENT
  Age: 30 Year
  Sex: Female

DRUGS (2)
  1. AVONEX [Suspect]
     Indication: MULTIPLE SCLEROSIS
     Route: 030
     Dates: start: 20050415, end: 20051001
  2. AVONEX [Suspect]
     Route: 030
     Dates: start: 20081106

REACTIONS (4)
  - ARTHROPOD BITE [None]
  - HEADACHE [None]
  - INFECTION [None]
  - MULTIPLE SCLEROSIS RELAPSE [None]
